FAERS Safety Report 20610585 (Version 1)
Quarter: 2022Q1

REPORT INFORMATION
  Report Type: Spontaneous
  Country: FR (occurrence: FR)
  Receive Date: 20220318
  Receipt Date: 20220318
  Transmission Date: 20220423
  Serious: Yes (Congenital Anomaly, Other)
  Sender: FDA-Public Use
  Company Number: FR-ABBVIE-22K-056-4321317-00

PATIENT
  Sex: Male

DRUGS (1)
  1. VALPROATE SODIUM [Suspect]
     Active Substance: VALPROATE SODIUM
     Indication: Maternal exposure timing unspecified
     Route: 064

REACTIONS (23)
  - Congenital genital malformation [Unknown]
  - Kidney malformation [Unknown]
  - Fine motor skill dysfunction [Unknown]
  - Hypotonia [Unknown]
  - Foot deformity [Unknown]
  - Psychomotor retardation [Unknown]
  - Language disorder [Unknown]
  - Behaviour disorder [Unknown]
  - Memory impairment [Unknown]
  - Cognitive disorder [Unknown]
  - Balance disorder [Unknown]
  - Knee deformity [Unknown]
  - Disorientation [Unknown]
  - Gastrooesophageal reflux disease [Unknown]
  - Ear infection [Unknown]
  - Anxiety [Unknown]
  - Fatigue [Unknown]
  - Dysphagia [Unknown]
  - Enuresis [Unknown]
  - Disturbance in attention [Unknown]
  - Developmental delay [Unknown]
  - Autism spectrum disorder [Unknown]
  - Foetal exposure during pregnancy [Unknown]

NARRATIVE: CASE EVENT DATE: 20080201
